FAERS Safety Report 7916175-3 (Version None)
Quarter: 2011Q4

REPORT INFORMATION
  Report Type: 
  Country: None (occurrence: None)
  Receive Date: 20111116
  Receipt Date: 20110128
  Transmission Date: 20120403
  Serious: Yes (Hospitalization, Other)
  Sender: FDA-Public Use
  Company Number: US-BAYER-201040694NA

PATIENT
  Age: 23 Year
  Sex: Female
  Weight: 44.998 kg

DRUGS (7)
  1. YAZ [Suspect]
     Indication: ACNE
     Dosage: UNK
     Route: 048
     Dates: start: 20060101, end: 20080101
  2. ZITHROMAX [Concomitant]
     Dosage: 250 MG, QD
     Route: 048
  3. ALLEGRA [Concomitant]
     Dosage: 180 MG, QD
     Route: 048
  4. ZOCOR [Concomitant]
     Dosage: UNK UNK, HS
     Route: 048
  5. ALBUTEROL INHALER [Concomitant]
     Dosage: UNK UNK, PRN
  6. PREVACID [Concomitant]
  7. NEXIUM [Concomitant]
     Dosage: UNK UNK, QD
     Route: 048

REACTIONS (5)
  - INJURY [None]
  - CHOLECYSTITIS CHRONIC [None]
  - PAIN [None]
  - WEIGHT DECREASED [None]
  - GALLBLADDER DISORDER [None]
